FAERS Safety Report 7408646-3 (Version None)
Quarter: 2011Q2

REPORT INFORMATION
  Report Type: 
  Country: None (occurrence: None)
  Receive Date: 20110412
  Receipt Date: 20110303
  Transmission Date: 20111010
  Serious: No
  Sender: FDA-Public Use
  Company Number: US-ABBOTT-10P-163-0655936-00

PATIENT
  Sex: Female
  Weight: 69.008 kg

DRUGS (1)
  1. LUPRON [Suspect]
     Indication: IN VITRO FERTILISATION
     Dosage: 5 UNITS DAILY
     Dates: start: 20100630

REACTIONS (2)
  - EPISTAXIS [None]
  - HAEMATEMESIS [None]
